FAERS Safety Report 4648652-5 (Version None)
Quarter: 2005Q2

REPORT INFORMATION
  Report Type: 
  Country: None (occurrence: None)
  Receive Date: 20050427
  Receipt Date: 20050415
  Transmission Date: 20051028
  Serious: Yes (Death)
  Sender: FDA-Public Use
  Company Number: HQWYE078518APR05

PATIENT
  Age: 68 Year
  Sex: Male

DRUGS (1)
  1. CORDARONE [Suspect]
     Dosage: 0.4 G 1X PER 1 DAY
     Route: 048

REACTIONS (1)
  - RASH PSORIAFORM [None]
